FAERS Safety Report 7421489-X (Version None)
Quarter: 2011Q1

REPORT INFORMATION
  Report Type: 
  Country: None (occurrence: None)
  Receive Date: 20110302
  Receipt Date: 20110104
  Transmission Date: 20110831
  Serious: No
  Sender: FDA-Public Use
  Company Number: 020499

PATIENT
  Sex: Female

DRUGS (2)
  1. CIMZIA [Suspect]
     Indication: CROHN'S DISEASE
     Dosage: (SUBCUTANEOUS), (SUBCUTANEOUS)
     Route: 058
     Dates: end: 20100401
  2. CIMZIA [Suspect]
     Indication: CROHN'S DISEASE
     Dosage: (SUBCUTANEOUS), (SUBCUTANEOUS)
     Route: 058
     Dates: start: 20100723

REACTIONS (6)
  - FATIGUE [None]
  - ABDOMINAL DISCOMFORT [None]
  - PHARYNGITIS [None]
  - OEDEMA PERIPHERAL [None]
  - ARTHRALGIA [None]
  - ABDOMINAL PAIN [None]
